FAERS Safety Report 26209708 (Version 1)
Quarter: 2025Q4

REPORT INFORMATION
  Report Type: Spontaneous
  Country: EU (occurrence: EU)
  Receive Date: 20251229
  Receipt Date: 20251229
  Transmission Date: 20260117
  Serious: Yes (Other)
  Sender: PFIZER
  Company Number: None

PATIENT
  Age: 16 Year
  Sex: Female

DRUGS (1)
  1. LITFULO [Suspect]
     Active Substance: RITLECITINIB TOSYLATE
     Indication: Alopecia areata
     Dosage: UNK
     Route: 048
     Dates: start: 20241231, end: 20251208

REACTIONS (2)
  - Enterocolitis [Recovering/Resolving]
  - Mesenteric lymphadenitis [Recovering/Resolving]

NARRATIVE: CASE EVENT DATE: 20251209
